FAERS Safety Report 7142281-X (Version None)
Quarter: 2010Q4

REPORT INFORMATION
  Report Type: 
  Country: None (occurrence: None)
  Receive Date: 20101207
  Receipt Date: 20101129
  Transmission Date: 20110411
  Serious: Yes (Other)
  Sender: FDA-Public Use
  Company Number: US-PFIZER INC-2006040903

PATIENT
  Sex: Male
  Weight: 53.061 kg

DRUGS (12)
  1. NEURONTIN [Suspect]
     Indication: CONVULSION
     Dosage: 300 MG, 3X/DAY
     Route: 048
  2. NEURONTIN [Suspect]
     Indication: PAIN
  3. GABAPENTIN [Suspect]
     Indication: CONVULSION
     Dosage: 300 MG, 4X/DAY
     Route: 048
     Dates: start: 20050101, end: 20050101
  4. GABAPENTIN [Suspect]
     Indication: PAIN
  5. CODEINE [Concomitant]
     Route: 065
  6. MORPHINE SULFATE [Concomitant]
     Indication: DYSPNOEA
     Dosage: 15 MG, 1-2 TABS EVERY HOUR AS NEEDED
     Route: 048
  7. MORPHINE SULFATE [Concomitant]
     Indication: PAIN
  8. ACETYLSALICYLIC ACID [Concomitant]
     Dosage: 20 MG, 2X/DAY
  9. RITALIN [Concomitant]
     Indication: FATIGUE
     Dosage: 20 MG, EVERY 4 HRS AS NEEDED
     Route: 048
  10. NASONEX [Concomitant]
  11. NITROGLYCERIN [Concomitant]
     Dosage: 0.4 MG, AS DIRECTED
  12. OXANDROLONE [Concomitant]

REACTIONS (13)
  - AGITATION [None]
  - ANGER [None]
  - BODY HEIGHT DECREASED [None]
  - CONSTIPATION [None]
  - CONVULSION [None]
  - DRUG EFFECT DECREASED [None]
  - DRUG INEFFECTIVE [None]
  - DYSPNOEA [None]
  - FEAR [None]
  - NAUSEA [None]
  - PORPHYRINS URINE INCREASED [None]
  - PRODUCT SUBSTITUTION ISSUE [None]
  - WEIGHT DECREASED [None]
